FAERS Safety Report 13418699 (Version 4)
Quarter: 2017Q2

REPORT INFORMATION
  Report Type: Spontaneous
  Country: CN (occurrence: CN)
  Receive Date: 20170406
  Receipt Date: 20170504
  Transmission Date: 20170830
  Serious: Yes (Other)
  Sender: FDA-Public Use
  Company Number: CN-ASTRAZENECA-2017SE34098

PATIENT
  Age: 75 Year
  Sex: Male

DRUGS (5)
  1. GEFITINIB [Concomitant]
     Active Substance: GEFITINIB
     Indication: SQUAMOUS CELL CARCINOMA OF LUNG
  2. IRESSA [Suspect]
     Active Substance: GEFITINIB
     Indication: SQUAMOUS CELL CARCINOMA OF LUNG
     Route: 048
     Dates: start: 2015, end: 20170401
  3. NUTRITIONAL SUPPLEMENT [Concomitant]
     Active Substance: DIETARY SUPPLEMENT
  4. LINGHAO [Concomitant]
     Indication: HYPERTENSION
  5. INDAPAMIDE. [Concomitant]
     Active Substance: INDAPAMIDE
     Indication: HYPERTENSION

REACTIONS (19)
  - Malignant neoplasm progression [Unknown]
  - Metastases to lymph nodes [Unknown]
  - Atelectasis [Unknown]
  - Prostatic cyst [Unknown]
  - Product use in unapproved indication [Unknown]
  - Cataract [Unknown]
  - Listless [Not Recovered/Not Resolved]
  - Aortic arteriosclerosis [Unknown]
  - Gastrointestinal disorder [Not Recovered/Not Resolved]
  - Eructation [Not Recovered/Not Resolved]
  - Decreased appetite [Not Recovered/Not Resolved]
  - Arteriosclerosis coronary artery [Unknown]
  - Drug resistance [Unknown]
  - Abdominal pain upper [Not Recovered/Not Resolved]
  - Benign prostatic hyperplasia [Unknown]
  - Pneumonitis [Unknown]
  - Blood glucose fluctuation [Unknown]
  - Pleural effusion [Unknown]
  - Off label use [Unknown]

NARRATIVE: CASE EVENT DATE: 2016
